FAERS Safety Report 4479973-7 (Version None)
Quarter: 2004Q4

REPORT INFORMATION
  Report Type: 
  Country: None (occurrence: None)
  Receive Date: 20041018
  Receipt Date: 20041006
  Transmission Date: 20050328
  Serious: Yes (Hospitalization)
  Sender: FDA-Public Use
  Company Number: B0347298A

PATIENT
  Age: 52 Year
  Sex: Male

DRUGS (1)
  1. PARNATE [Suspect]
     Dosage: PER DAY/ORAL
     Route: 048

REACTIONS (7)
  - BLOOD PRESSURE SYSTOLIC INCREASED [None]
  - CEREBROVASCULAR SPASM [None]
  - COMPUTERISED TOMOGRAM ABNORMAL [None]
  - DELIRIUM [None]
  - HEADACHE [None]
  - OEDEMA [None]
  - SUBARACHNOID HAEMORRHAGE [None]
